FAERS Safety Report 18923834 (Version 1)
Quarter: 2021Q1

REPORT INFORMATION
  Report Type: Spontaneous
  Country: US (occurrence: US)
  Receive Date: 20210222
  Receipt Date: 20210222
  Transmission Date: 20210420
  Serious: No
  Sender: FDA-Public Use
  Company Number: US-TAKEDA-2021TUS010586

PATIENT
  Sex: Female
  Weight: 54 kg

DRUGS (1)
  1. LIALDA [Suspect]
     Active Substance: MESALAMINE
     Indication: COLITIS ULCERATIVE
     Dosage: 1.2 GRAM (4 CAPSULES), QD
     Route: 048

REACTIONS (2)
  - Peripheral swelling [Unknown]
  - Joint swelling [Unknown]
